FAERS Safety Report 19891756 (Version 1)
Quarter: 2021Q3

REPORT INFORMATION
  Report Type: Spontaneous
  Country: IL (occurrence: IL)
  Receive Date: 20210928
  Receipt Date: 20210928
  Transmission Date: 20211014
  Serious: Yes (Other)
  Sender: FDA-Public Use
  Company Number: IL-AMGEN-ISRSP2021147940

PATIENT
  Sex: Female

DRUGS (1)
  1. EVENITY [Suspect]
     Active Substance: ROMOSOZUMAB-AQQG
     Indication: PRODUCT USED FOR UNKNOWN INDICATION
     Dosage: 1 DOSAGE FORM, QMO, ONE EVENITY INJECTION PER MONTH (INSTEAD OF TWO INJECTIONS, I.E., THE PATIENT WA
     Route: 065

REACTIONS (2)
  - Myelitis transverse [Unknown]
  - Off label use [Unknown]
